FAERS Safety Report 7199526-X (Version None)
Quarter: 2010Q4

REPORT INFORMATION
  Report Type: 
  Country: None (occurrence: None)
  Receive Date: 20101214
  Receipt Date: 20101129
  Transmission Date: 20110411
  Serious: Yes (Other)
  Sender: FDA-Public Use
  Company Number: JP-004264

PATIENT
  Age: 11 Year
  Sex: Male

DRUGS (4)
  1. MINIRIN/DDAVP (DESMOPRESSIN) (NOT SPECIFIED) [Suspect]
     Indication: ENURESIS
     Dosage: NASAL
     Route: 045
     Dates: start: 20100405, end: 20101029
  2. TRYPTANOL /00002202/ (TRYPTANOL) (NOT SPECIFIED) [Suspect]
     Indication: PRODUCT USED FOR UNKNOWN INDICATION
     Dosage: 10 MG
     Dates: start: 20101029
  3. PROPIVERINE HYDROCHLORIDE [Concomitant]
  4. IMIDAFENACIN [Concomitant]

REACTIONS (5)
  - CONVULSION [None]
  - DRUG EFFECT DECREASED [None]
  - HYPONATRAEMIA [None]
  - LOSS OF CONSCIOUSNESS [None]
  - VOMITING [None]
